FAERS Safety Report 15670863 (Version 1)
Quarter: 2018Q4

REPORT INFORMATION
  Report Type: Spontaneous
  Country: US (occurrence: US)
  Receive Date: 20181128
  Receipt Date: 20181128
  Transmission Date: 20190205
  Serious: Yes (Hospitalization)
  Sender: FDA-Public Use
  Company Number: None

PATIENT
  Age: 69 Year
  Sex: Male
  Weight: 89 kg

DRUGS (1)
  1. INV-D URVALUMAB (MEDI4736) (INVESTIGATIONAL CHEMO) [Suspect]
     Active Substance: DURVALUMAB
     Indication: MALIGNANT PALATE NEOPLASM
     Route: 042
     Dates: start: 20180918, end: 20181001

REACTIONS (4)
  - Acute kidney injury [None]
  - Decreased appetite [None]
  - Dehydration [None]
  - Hypotension [None]

NARRATIVE: CASE EVENT DATE: 20181126
